FAERS Safety Report 10363244 (Version 2)
Quarter: 2014Q3

REPORT INFORMATION
  Report Type: Spontaneous
  Country: US (occurrence: US)
  Receive Date: 20140805
  Receipt Date: 20140805
  Transmission Date: 20150326
  Serious: Yes (Hospitalization, Other)
  Sender: FDA-Public Use
  Company Number: US-009507513-2010SP004922

PATIENT
  Sex: Female
  Weight: 52.16 kg

DRUGS (2)
  1. IBUPROFEN. [Concomitant]
     Active Substance: IBUPROFEN
     Indication: ANTIINFLAMMATORY THERAPY
     Dosage: UNK UNK, PRN
  2. NUVARING [Suspect]
     Active Substance: ETHINYL ESTRADIOL\ETONOGESTREL
     Indication: CONTRACEPTION
     Route: 067
     Dates: start: 2003, end: 2006

REACTIONS (25)
  - Deep vein thrombosis [Unknown]
  - Haematoma [Unknown]
  - Skin abrasion [Unknown]
  - Ligament injury [Unknown]
  - Lip injury [Unknown]
  - Irritable bowel syndrome [Unknown]
  - Tooth fracture [Unknown]
  - Pelvic fracture [Unknown]
  - Joint dislocation [Unknown]
  - Open reduction of fracture [Unknown]
  - Wrist surgery [Unknown]
  - Bladder repair [Unknown]
  - Renal failure acute [Recovered/Resolved]
  - Joint injury [Unknown]
  - Craniocerebral injury [Unknown]
  - Weight decreased [Unknown]
  - Bronchitis [Unknown]
  - Wrist surgery [Unknown]
  - Rhabdomyolysis [Unknown]
  - Joint effusion [Unknown]
  - Vena cava filter insertion [Unknown]
  - Road traffic accident [Unknown]
  - Ulnar nerve injury [Unknown]
  - Urinary bladder rupture [Unknown]
  - Loss of consciousness [Unknown]

NARRATIVE: CASE EVENT DATE: 200602
